FAERS Safety Report 6575089-4 (Version None)
Quarter: 2010Q1

REPORT INFORMATION
  Report Type: 
  Country: None (occurrence: None)
  Receive Date: 20100209
  Receipt Date: 20100127
  Transmission Date: 20100710
  Serious: Yes (Hospitalization, Other)
  Sender: FDA-Public Use
  Company Number: JP-BAYER-200812856BYL

PATIENT
  Age: 70 Year
  Sex: Female
  Weight: 49 kg

DRUGS (5)
  1. NEXAVAR [Suspect]
     Indication: RENAL CELL CARCINOMA
     Dosage: UNIT DOSE: 200 MG
     Route: 048
     Dates: start: 20080710
  2. NEXAVAR [Suspect]
     Dosage: UNIT DOSE: 200 MG
     Route: 048
     Dates: start: 20081103, end: 20081205
  3. INTERFERON ALFA [Suspect]
     Indication: DRUG USE FOR UNKNOWN INDICATION
     Dosage: TOTAL DAILY DOSE: 5 MIU
     Route: 065
     Dates: start: 20080501
  4. GLYCERIN [Concomitant]
     Indication: PROPHYLAXIS
     Dosage: STARTED BEFORE NEXAVAR ADMINISTRATION, MIXED WITH DISTILLED WATER, 1:1
     Route: 061
  5. DISTILLED WATER [Concomitant]
     Indication: PROPHYLAXIS
     Dosage: STARTED BEFORE NEXAVAR ADMINISTRATION, MIXED WITH GLYCERIN, 1:1
     Route: 061

REACTIONS (11)
  - C-REACTIVE PROTEIN INCREASED [None]
  - DECREASED APPETITE [None]
  - HAEMOGLOBIN DECREASED [None]
  - HAEMOGLOBINAEMIA [None]
  - HYPERTENSION [None]
  - HYPOALBUMINAEMIA [None]
  - HYPONATRAEMIA [None]
  - LIPASE INCREASED [None]
  - MALAISE [None]
  - SKIN NECROSIS [None]
  - WHITE BLOOD CELL COUNT DECREASED [None]
